FAERS Safety Report 8116381-1 (Version None)
Quarter: 2012Q1

REPORT INFORMATION
  Report Type: 
  Country: None (occurrence: None)
  Receive Date: 20120206
  Receipt Date: 20120127
  Transmission Date: 20120608
  Serious: Yes (Hospitalization)
  Sender: FDA-Public Use
  Company Number: FR-GLAXOSMITHKLINE-B0777846A

PATIENT
  Sex: Female

DRUGS (7)
  1. ACTONEL [Concomitant]
  2. PREDNISONE TAB [Concomitant]
  3. ACETAMINOPHEN [Concomitant]
  4. ARIXTRA [Suspect]
     Indication: PRODUCT USED FOR UNKNOWN INDICATION
     Route: 042
     Dates: start: 20100401, end: 20100501
  5. IRBESARTAN [Concomitant]
  6. OXAZEPAM [Concomitant]
  7. RABEPRAZOLE SODIUM [Concomitant]

REACTIONS (1)
  - HAEMATOMA [None]
